FAERS Safety Report 23700504 (Version 1)
Quarter: 2024Q2

REPORT INFORMATION
  Report Type: Report from Study
  Country: US (occurrence: US)
  Receive Date: 20240403
  Receipt Date: 20240403
  Transmission Date: 20240715
  Serious: Yes (Other)
  Sender: FDA-Public Use
  Company Number: US-GILEAD-2024-0667707

PATIENT
  Sex: Female

DRUGS (8)
  1. AZTREONAM LYSINE [Suspect]
     Active Substance: AZTREONAM LYSINE
     Indication: Cystic fibrosis
     Dosage: 75 MG, TID [CYCLING 28 DAYS ON AND 28 DAYS OFF ]
     Route: 055
  2. TRIKAFTA [Concomitant]
     Active Substance: ELEXACAFTOR\IVACAFTOR\TEZACAFTOR
     Dosage: 100/50/75 MG AND 150 MG TAB 21S
  3. CLARINEX [Concomitant]
     Active Substance: DESLORATADINE
  4. FISH OIL [Concomitant]
     Active Substance: FISH OIL
     Dosage: 1200 MG CAPSULE
  5. PULMOZYME [Concomitant]
     Active Substance: DORNASE ALFA
  6. CHOLECALCIFEROL [Concomitant]
     Active Substance: CHOLECALCIFEROL
  7. TOBI [Concomitant]
     Active Substance: TOBRAMYCIN
  8. VITA B [CYANOCOBALAMIN;PYRIDOXINE HYDROCHLORIDE;THIAMINE HYDROCHLORIDE [Concomitant]

REACTIONS (3)
  - Blindness [Unknown]
  - Neuropathy peripheral [Unknown]
  - Tendon rupture [Unknown]
